FAERS Safety Report 26160381 (Version 1)
Quarter: 2025Q4

REPORT INFORMATION
  Report Type: Spontaneous
  Country: US (occurrence: US)
  Receive Date: 20251216
  Receipt Date: 20251216
  Transmission Date: 20260117
  Serious: Yes (Other)
  Sender: SANOFI AVENTIS
  Company Number: US-SA-2025SA372870

PATIENT
  Age: 72 Year
  Sex: Male
  Weight: 90.91 kg

DRUGS (18)
  1. DUPIXENT [Suspect]
     Active Substance: DUPILUMAB
     Indication: Dermatitis atopic
     Dosage: 300 MG, QOW
     Route: 058
  2. DUPIXENT [Suspect]
     Active Substance: DUPILUMAB
     Dosage: 300 MG, Q3W
     Route: 058
  3. DUPIXENT [Suspect]
     Active Substance: DUPILUMAB
     Dosage: 300 MG, QOW
     Route: 058
  4. TAMSULOSIN HYDROCHLORIDE [Concomitant]
     Active Substance: TAMSULOSIN HYDROCHLORIDE
  5. FLONASE ALLERGY RELIEF [Concomitant]
     Active Substance: FLUTICASONE PROPIONATE
  6. DIETARY SUPPLEMENT\PROBIOTICS [Concomitant]
     Active Substance: DIETARY SUPPLEMENT\PROBIOTICS NOS
  7. MELATONIN [Concomitant]
     Active Substance: MELATONIN
  8. TADALAFIL [Concomitant]
     Active Substance: TADALAFIL
  9. ASPIRIN [Concomitant]
     Active Substance: ASPIRIN
  10. COENZYME Q10 [Concomitant]
     Active Substance: DIETARY SUPPLEMENT\UBIDECARENONE
  11. FLECAINIDE ACETATE [Concomitant]
     Active Substance: FLECAINIDE ACETATE
  12. VITAMINS [Concomitant]
     Active Substance: VITAMINS
  13. TRIAMCINOLONE ACETONIDE [Concomitant]
     Active Substance: TRIAMCINOLONE ACETONIDE
  14. LOVASTATIN [Concomitant]
     Active Substance: LOVASTATIN
  15. METOPROLOL TARTRATE [Concomitant]
     Active Substance: METOPROLOL TARTRATE
  16. CLOBETASOL PROPIONATE [Concomitant]
     Active Substance: CLOBETASOL PROPIONATE
  17. ELIQUIS [Concomitant]
     Active Substance: APIXABAN
  18. PROBIOTICS NOS [Concomitant]
     Active Substance: PROBIOTICS NOS

REACTIONS (6)
  - Cerebrovascular accident [Unknown]
  - Nephrolithiasis [Unknown]
  - Skin weeping [Unknown]
  - Pruritus [Unknown]
  - Dermatitis atopic [Unknown]
  - Off label use [Unknown]

NARRATIVE: CASE EVENT DATE: 20230101
